FAERS Safety Report 12087853 (Version 1)
Quarter: 2016Q1

REPORT INFORMATION
  Report Type: Spontaneous
  Country: US (occurrence: US)
  Receive Date: 20160217
  Receipt Date: 20160217
  Transmission Date: 20160526
  Serious: No
  Sender: FDA-Public Use
  Company Number: US-ALLERGAN-1518712US

PATIENT
  Age: 39 Year
  Sex: Female

DRUGS (1)
  1. RESTASIS [Suspect]
     Active Substance: CYCLOSPORINE
     Indication: DRY EYE
     Dosage: UNK, BID
     Route: 047
     Dates: end: 201507

REACTIONS (2)
  - Eye discharge [Recovered/Resolved]
  - Pyogenic granuloma [Recovered/Resolved]

NARRATIVE: CASE EVENT DATE: 201504
